FAERS Safety Report 7213262-2 (Version None)
Quarter: 2011Q1

REPORT INFORMATION
  Report Type: 
  Country: None (occurrence: None)
  Receive Date: 20110106
  Receipt Date: 20101220
  Transmission Date: 20110831
  Serious: No
  Sender: FDA-Public Use
  Company Number: US-B.I. PHARMACEUTICALS,INC./RIDGEFIELD-2010-BP-15139BP

PATIENT
  Age: 76 Year
  Sex: Male

DRUGS (9)
  1. NIASPAN [Concomitant]
     Indication: BLOOD CHOLESTEROL INCREASED
     Dosage: 500 MG
     Route: 048
  2. FOSINOPRIL SODIUM [Concomitant]
     Indication: HYPERTENSION
     Dosage: 20 MG
     Route: 048
  3. CARVEDILOL [Concomitant]
     Indication: HYPERTENSION
     Dosage: 12.5 MG
     Route: 048
  4. PRADAXA [Suspect]
     Dosage: 300 MG
     Route: 048
     Dates: start: 20101201
  5. FUROSEMIDE [Concomitant]
     Indication: CHEST DISCOMFORT
     Dosage: 40 MG
     Route: 048
  6. ASPIRIN [Concomitant]
     Dosage: 81 MG
     Route: 048
  7. LIPITOR [Concomitant]
     Indication: BLOOD CHOLESTEROL INCREASED
     Dosage: 80 MG
     Route: 048
  8. DIGOXIN [Concomitant]
     Dosage: 125 MCG
     Route: 048
  9. OMEPRAZOLE [Concomitant]
     Indication: HIATUS HERNIA
     Dosage: 40 MG
     Route: 048

REACTIONS (3)
  - ABDOMINAL DISCOMFORT [None]
  - HAEMORRHOIDAL HAEMORRHAGE [None]
  - FAECES DISCOLOURED [None]
